FAERS Safety Report 6501787-4 (Version None)
Quarter: 2009Q4

REPORT INFORMATION
  Report Type: 
  Country: None (occurrence: None)
  Receive Date: 20091216
  Receipt Date: 20091204
  Transmission Date: 20100525
  Serious: Yes (Hospitalization)
  Sender: FDA-Public Use
  Company Number: DE-PFIZER INC-2009278099

PATIENT
  Age: 73 Year
  Sex: Male
  Weight: 77 kg

DRUGS (5)
  1. SUNITINIB MALATE [Suspect]
     Indication: RENAL CELL CARCINOMA
     Dosage: 37.5 MG, 1X/DAY
     Route: 048
     Dates: start: 20080819, end: 20080914
  2. SUNITINIB MALATE [Suspect]
     Dosage: 37.5 MG, 1X/DAY
     Route: 048
     Dates: start: 20080929, end: 20081026
  3. SUNITINIB MALATE [Suspect]
     Dosage: UNK
     Route: 048
     Dates: end: 20081118
  4. RAMIPRIL [Concomitant]
     Dosage: UNK
     Dates: start: 20050101
  5. ALLOPURINOL [Concomitant]
     Dosage: UNK
     Dates: start: 20080101

REACTIONS (1)
  - CONJUNCTIVITIS INFECTIVE [None]
